FAERS Safety Report 4656357-X (Version None)
Quarter: 2005Q2

REPORT INFORMATION
  Report Type: 
  Country: None (occurrence: None)
  Receive Date: 20050509
  Receipt Date: 20050411
  Transmission Date: 20051028
  Serious: Yes (Hospitalization)
  Sender: FDA-Public Use
  Company Number: FR-BRISTOL-MYERS SQUIBB COMPANY-12931903

PATIENT
  Age: 64 Year
  Sex: Male

DRUGS (7)
  1. GLUCOVANCE [Suspect]
     Indication: DIABETES MELLITUS
     Route: 048
     Dates: start: 20050403, end: 20050410
  2. DETENSIEL [Suspect]
     Route: 048
     Dates: start: 20030101
  3. ALDACTAZINE [Concomitant]
     Route: 048
  4. MICARDIS [Concomitant]
     Route: 048
     Dates: start: 20030101
  5. PREVISCAN [Concomitant]
     Route: 048
     Dates: start: 20040101
  6. FLECAINE [Concomitant]
     Route: 048
     Dates: start: 20040101
  7. FRACTAL [Concomitant]
     Route: 048
     Dates: start: 20020101

REACTIONS (2)
  - HYPOGLYCAEMIA [None]
  - LOSS OF CONSCIOUSNESS [None]
